FAERS Safety Report 25489912 (Version 2)
Quarter: 2025Q3

REPORT INFORMATION
  Report Type: Report from Study
  Country: CA (occurrence: CA)
  Receive Date: 20250627
  Receipt Date: 20250828
  Transmission Date: 20251021
  Serious: Yes (Other)
  Sender: AMGEN
  Company Number: CA-AMGEN-CANSL2025124900

PATIENT
  Age: 11 Year
  Sex: Male

DRUGS (2)
  1. WEZLANA [Suspect]
     Active Substance: USTEKINUMAB-AUUB
     Indication: Crohn^s disease
     Route: 040
     Dates: start: 20250623
  2. WEZLANA [Suspect]
     Active Substance: USTEKINUMAB-AUUB
     Dosage: 90 MILLIGRAM, Q8WK
     Route: 065
     Dates: start: 2025

REACTIONS (3)
  - Plague [Not Recovered/Not Resolved]
  - Psoriasis [Not Recovered/Not Resolved]
  - Off label use [Unknown]

NARRATIVE: CASE EVENT DATE: 20250601
